FAERS Safety Report 7959877-5 (Version None)
Quarter: 2011Q4

REPORT INFORMATION
  Report Type: 
  Country: None (occurrence: None)
  Receive Date: 20111206
  Receipt Date: 20111128
  Transmission Date: 20120403
  Serious: Yes (Other)
  Sender: FDA-Public Use
  Company Number: PHHY2011JP104463

PATIENT
  Age: 52 Year
  Sex: Male

DRUGS (4)
  1. RIFAMPICIN [Suspect]
     Indication: TUBERCULOUS PLEURISY
  2. PYRAZINAMIDE [Suspect]
     Indication: TUBERCULOUS PLEURISY
  3. ISONIAZID [Suspect]
     Indication: TUBERCULOUS PLEURISY
  4. ETHAMBUTOL HYDROCHLORIDE [Suspect]
     Indication: TUBERCULOUS PLEURISY

REACTIONS (8)
  - EOSINOPHILIA [None]
  - ERYTHEMA [None]
  - DRUG RASH WITH EOSINOPHILIA AND SYSTEMIC SYMPTOMS [None]
  - LYMPHADENOPATHY [None]
  - LIVER DISORDER [None]
  - LYMPHOCYTE MORPHOLOGY ABNORMAL [None]
  - LEUKOCYTOSIS [None]
  - PYREXIA [None]
